FAERS Safety Report 13650200 (Version 1)
Quarter: 2017Q2

REPORT INFORMATION
  Report Type: Spontaneous
  Country: US (occurrence: US)
  Receive Date: 20170613
  Receipt Date: 20170613
  Transmission Date: 20170830
  Serious: No
  Sender: FDA-Public Use
  Company Number: None

PATIENT
  Sex: Female

DRUGS (1)
  1. IBRANCE [Suspect]
     Active Substance: PALBOCICLIB
     Indication: MALAISE
     Route: 048
     Dates: start: 20150410

REACTIONS (4)
  - Dyspnoea [None]
  - Condition aggravated [None]
  - Fatigue [None]
  - Stress [None]
